FAERS Safety Report 19824470 (Version 14)
Quarter: 2023Q1

REPORT INFORMATION
  Report Type: Spontaneous
  Country: CA (occurrence: CA)
  Receive Date: 20210914
  Receipt Date: 20230301
  Transmission Date: 20230417
  Serious: Yes (Hospitalization, Other)
  Sender: FDA-Public Use
  Company Number: CA-CELLTRION INC.-2021CA009906

PATIENT

DRUGS (23)
  1. INFLECTRA [Suspect]
     Active Substance: INFLIXIMAB-DYYB
     Indication: Crohn^s disease
     Dosage: 5 MG/KG, AT 2, 6, WEEK DOSE, THEN EVERY 8 WEEKS
     Route: 042
     Dates: start: 20210331
  2. INFLECTRA [Suspect]
     Active Substance: INFLIXIMAB-DYYB
     Dosage: 5 MG/KG, AT 2, 6, WEEK DOSE, THEN EVERY 8 WEEKS
     Route: 042
     Dates: start: 20210414
  3. INFLECTRA [Suspect]
     Active Substance: INFLIXIMAB-DYYB
     Dosage: 5 MG/KG, AT 2, 6, WEEK DOSE, THEN EVERY 8 WEEKS
     Route: 042
     Dates: start: 20210512
  4. INFLECTRA [Suspect]
     Active Substance: INFLIXIMAB-DYYB
     Dosage: 5 MG/KG, AT 2, 6, WEEK DOSE, THEN EVERY 8 WEEKS
     Route: 042
     Dates: start: 20210512
  5. INFLECTRA [Suspect]
     Active Substance: INFLIXIMAB-DYYB
     Dosage: 5 MG/KG, AT 2, 6, WEEK DOSE, THEN EVERY 8 WEEKS
     Route: 042
     Dates: start: 20210707
  6. INFLECTRA [Suspect]
     Active Substance: INFLIXIMAB-DYYB
     Dosage: 5 MG/KG, AT 2, 6, WEEK DOSE, THEN EVERY 8 WEEKS
     Route: 042
     Dates: start: 20210901
  7. INFLECTRA [Suspect]
     Active Substance: INFLIXIMAB-DYYB
     Dosage: 5 MG/KG, AT 2, 6, WEEK DOSE, THEN EVERY 8 WEEKS
     Route: 042
     Dates: start: 20211027
  8. INFLECTRA [Suspect]
     Active Substance: INFLIXIMAB-DYYB
     Dosage: 5 MG/KG, AT 2, 6, WEEK DOSE, THEN EVERY 8 WEEKS
     Route: 042
     Dates: start: 20211222, end: 20211222
  9. INFLECTRA [Suspect]
     Active Substance: INFLIXIMAB-DYYB
     Dosage: 5 MG/KG, Q 2, 6, WEEK DOSE, THEN Q 8 WEEKS
     Route: 042
     Dates: start: 20220217
  10. INFLECTRA [Suspect]
     Active Substance: INFLIXIMAB-DYYB
     Dosage: 5 MG/KG, AT 2, 6, WEEK DOSE, THEN EVERY 8 WEEKS
     Route: 042
     Dates: start: 20220413
  11. INFLECTRA [Suspect]
     Active Substance: INFLIXIMAB-DYYB
     Dosage: 750 MG EVERY 8 WEEKS
     Route: 042
     Dates: start: 20220608
  12. INFLECTRA [Suspect]
     Active Substance: INFLIXIMAB-DYYB
     Dosage: 750 MG EVERY 8 WEEKS
     Route: 042
     Dates: start: 20220803
  13. INFLECTRA [Suspect]
     Active Substance: INFLIXIMAB-DYYB
     Dosage: 750 MG EVERY 8 WEEKS
     Route: 042
     Dates: start: 20220928
  14. INFLECTRA [Suspect]
     Active Substance: INFLIXIMAB-DYYB
     Dosage: 750 MG, EVERY 4 WEEKS
     Route: 042
     Dates: start: 20221103
  15. INFLECTRA [Suspect]
     Active Substance: INFLIXIMAB-DYYB
     Dosage: 750 MG, EVERY 4 WEEKS
     Route: 042
     Dates: start: 20221129
  16. INFLECTRA [Suspect]
     Active Substance: INFLIXIMAB-DYYB
     Dosage: 750 MG, EVERY 4 WEEKS
     Route: 042
     Dates: start: 20221222
  17. INFLECTRA [Suspect]
     Active Substance: INFLIXIMAB-DYYB
     Dosage: 750 MG, EVERY 4 WEEKS
     Route: 042
     Dates: start: 20230120
  18. INFLECTRA [Suspect]
     Active Substance: INFLIXIMAB-DYYB
     Dosage: 750 MG, EVERY 4 WEEKS
     Route: 042
  19. CORTISONE [Concomitant]
     Active Substance: CORTISONE
     Dosage: 1 DF
     Route: 042
  20. LYRICA [Concomitant]
     Active Substance: PREGABALIN
     Dosage: UNK
  21. METFORMIN [Concomitant]
     Active Substance: METFORMIN HYDROCHLORIDE
     Dosage: 500 MG
     Route: 065
  22. PREDNISONE [Concomitant]
     Active Substance: PREDNISONE
     Dosage: 50 MG
     Route: 065
     Dates: start: 20210202
  23. TYLENOL [Concomitant]
     Active Substance: ACETAMINOPHEN
     Dosage: 1 G

REACTIONS (9)
  - Pneumonia legionella [Recovered/Resolved]
  - Pyrexia [Recovered/Resolved]
  - Headache [Recovered/Resolved]
  - Cough [Recovered/Resolved]
  - Off label use [Unknown]
  - Blood pressure systolic increased [Unknown]
  - Condition aggravated [Recovering/Resolving]
  - Pain in extremity [Unknown]
  - Arthralgia [Unknown]

NARRATIVE: CASE EVENT DATE: 20210512
